FAERS Safety Report 5546246-0 (Version None)
Quarter: 2007Q4

REPORT INFORMATION
  Report Type: 
  Country: None (occurrence: None)
  Receive Date: 20071211
  Receipt Date: 20071128
  Transmission Date: 20080405
  Serious: Yes (Death, Hospitalization)
  Sender: FDA-Public Use
  Company Number: BR-AMGEN-US251219

PATIENT
  Age: 43 Year
  Sex: Female
  Weight: 58 kg

DRUGS (5)
  1. ENBREL [Suspect]
     Indication: PUSTULAR PSORIASIS
     Route: 058
     Dates: start: 20060327, end: 20070925
  2. FOLIC ACID [Concomitant]
     Indication: PUSTULAR PSORIASIS
     Dosage: UNSPECIFIED
     Route: 048
  3. DEFLAZACORT [Concomitant]
     Indication: PUSTULAR PSORIASIS
     Route: 048
     Dates: start: 20060201, end: 20060501
  4. METHOTREXATE [Concomitant]
     Indication: PUSTULAR PSORIASIS
     Route: 048
     Dates: start: 20060301, end: 20070501
  5. METHOTREXATE [Concomitant]
     Route: 048
     Dates: start: 20070501, end: 20070925

REACTIONS (4)
  - BRONCHOSPASM [None]
  - DEATH [None]
  - RESPIRATORY FAILURE [None]
  - STEVENS-JOHNSON SYNDROME [None]
